FAERS Safety Report 8844240 (Version 2)
Quarter: 2013Q1

REPORT INFORMATION
  Report Type: Spontaneous
  Country: JP (occurrence: JP)
  Receive Date: 20121017
  Receipt Date: 20130123
  Transmission Date: 20140127
  Serious: Yes (Other)
  Sender: FDA-Public Use
  Company Number: JP-009507513-1206USA04722

PATIENT
  Age: 48 Year
  Sex: Female

DRUGS (5)
  1. FOSAPREPITANT DIMEGLUMINE [Suspect]
     Indication: PROPHYLAXIS OF NAUSEA AND VOMITING
     Dosage: 150 MG, QD
     Route: 042
     Dates: start: 20120410, end: 20120410
  2. FARMORUBICIN [Concomitant]
     Indication: BREAST CANCER
     Dates: start: 20120410, end: 20120410
  3. ENDOXAN [Concomitant]
     Indication: BREAST CANCER
     Dates: start: 20120410, end: 20120410
  4. ALOXI [Concomitant]
     Dates: start: 20120410, end: 20120410
  5. DECADRON (DEXAMETHASONE) [Concomitant]
     Dates: start: 20120410, end: 20120410

REACTIONS (2)
  - Injection site phlebitis [Recovered/Resolved]
  - Injection site pain [Recovered/Resolved]
